FAERS Safety Report 24421721 (Version 1)
Quarter: 2024Q4

REPORT INFORMATION
  Report Type: Spontaneous
  Country: DE (occurrence: DE)
  Receive Date: 20241010
  Receipt Date: 20241010
  Transmission Date: 20250114
  Serious: Yes (Death, Other)
  Sender: AUROBINDO
  Company Number: DE-JNJFOC-20240960350

PATIENT
  Age: 25 Year
  Sex: Female

DRUGS (5)
  1. LOPERAMIDE [Interacting]
     Active Substance: LOPERAMIDE
     Indication: Diarrhoea
     Dosage: 2 MILLIGRAM (TOOK TWO TABLETS OF LOPERAMIDE OF 2 MG, PATIENT TOOK ANOTHER 2 MG OF LOPERAMIDE)
     Route: 065
  2. LOPERAMIDE [Interacting]
     Active Substance: LOPERAMIDE
     Indication: Vomiting
  3. LOPERAMIDE [Interacting]
     Active Substance: LOPERAMIDE
     Indication: Abdominal pain
  4. QUININE [Suspect]
     Active Substance: QUININE
     Indication: Product used for unknown indication
     Dosage: CONSUMED ABOUT 2.5 LITERS OF TONIC WATER, TONIC CONTAINS BETWEEN 60 AND 80 MG QUININE PER LITER
     Route: 048
  5. IBUPROFEN [Concomitant]
     Active Substance: IBUPROFEN
     Indication: Analgesic therapy
     Dosage: 60 MILLIGRAM
     Route: 065

REACTIONS (4)
  - Brain death [Fatal]
  - Cardiac arrest [Fatal]
  - Toxicity to various agents [Fatal]
  - Drug interaction [Fatal]
